FAERS Safety Report 9028121 (Version 1)
Quarter: 2013Q1

REPORT INFORMATION
  Report Type: Spontaneous
  Country: US (occurrence: US)
  Receive Date: 20130123
  Receipt Date: 20130123
  Transmission Date: 20140127
  Serious: Yes (Hospitalization)
  Sender: FDA-Public Use
  Company Number: US-BAYER-2013-007343

PATIENT
  Age: 40 Year
  Sex: Female
  Weight: 72.56 kg

DRUGS (9)
  1. YAZ [Suspect]
  2. CARDIZEM [Concomitant]
  3. RYTHMOL [Concomitant]
  4. DIGOXIN [Concomitant]
  5. LOPRESSOR [Concomitant]
  6. PHENYTOIN [Concomitant]
  7. GLUCOPHAGE [Concomitant]
  8. ATIVAN [Concomitant]
  9. ADENOSINE [Concomitant]
     Indication: SUPRAVENTRICULAR TACHYCARDIA

REACTIONS (1)
  - Cerebrovascular accident [None]
